FAERS Safety Report 6303930-9 (Version None)
Quarter: 2009Q3

REPORT INFORMATION
  Report Type: 
  Country: None (occurrence: None)
  Receive Date: 20090805
  Receipt Date: 20090723
  Transmission Date: 20100115
  Serious: Yes (Hospitalization)
  Sender: FDA-Public Use
  Company Number: DSA_33733_2009

PATIENT
  Sex: Female

DRUGS (5)
  1. ENALAPRIL MALEATE [Suspect]
     Indication: HYPERTENSION
     Dosage: (10 MG BID ORAL) ; (10 MG QD ORAL) ; (10 MG QD ORAL)
     Route: 048
     Dates: end: 20081101
  2. ENALAPRIL MALEATE [Suspect]
     Indication: HYPERTENSION
     Dosage: (10 MG BID ORAL) ; (10 MG QD ORAL) ; (10 MG QD ORAL)
     Route: 048
     Dates: start: 20081201, end: 20090501
  3. ENALAPRIL MALEATE [Suspect]
     Indication: HYPERTENSION
     Dosage: (10 MG BID ORAL) ; (10 MG QD ORAL) ; (10 MG QD ORAL)
     Route: 048
     Dates: start: 20090601
  4. RISPERIDONE [Suspect]
     Indication: DRUG USE FOR UNKNOWN INDICATION
     Dosage: (DF ORAL)
     Route: 048
  5. ALMARL [Concomitant]

REACTIONS (11)
  - ARRHYTHMIA [None]
  - BLOOD PRESSURE INADEQUATELY CONTROLLED [None]
  - FLUID RETENTION [None]
  - GENERALISED OEDEMA [None]
  - JAUNDICE [None]
  - MENTAL IMPAIRMENT [None]
  - PAIN [None]
  - PRODUCTIVE COUGH [None]
  - SPINAL CORD DISORDER [None]
  - URINE COLOUR ABNORMAL [None]
  - WEIGHT DECREASED [None]
